FAERS Safety Report 4647359-8 (Version None)
Quarter: 2005Q2

REPORT INFORMATION
  Report Type: 
  Country: None (occurrence: None)
  Receive Date: 20050426
  Receipt Date: 20050426
  Transmission Date: 20051028
  Serious: Yes (Other)
  Sender: FDA-Public Use
  Company Number: None

PATIENT
  Sex: Female
  Weight: 20 kg

DRUGS (1)
  1. ZYRTEC [Suspect]
     Indication: RHINITIS SEASONAL
     Dosage: 1/2 TEASPOON  QHS ORAL
     Route: 048
     Dates: start: 20050421, end: 20050424

REACTIONS (1)
  - ERYTHEMA [None]
